FAERS Safety Report 10901555 (Version 1)
Quarter: 2015Q1

REPORT INFORMATION
  Report Type: Spontaneous
  Country: US (occurrence: US)
  Receive Date: 20150310
  Receipt Date: 20150310
  Transmission Date: 20150721
  Serious: Yes (Other)
  Sender: FDA-Public Use
  Company Number: US-AMGEN-00030099

PATIENT
  Age: 37 Year
  Sex: Male
  Weight: 95.45 kg

DRUGS (3)
  1. ENBREL [Suspect]
     Active Substance: ETANERCEPT
     Indication: RHEUMATOID ARTHRITIS
     Dosage: 25 MG, 2 TIMES/WK
     Route: 058
     Dates: start: 19990131, end: 199910
  2. NAPROXEN SODIUM. [Concomitant]
     Active Substance: NAPROXEN SODIUM
  3. ZOLPIDEM [Concomitant]
     Active Substance: ZOLPIDEM\ZOLPIDEM TARTRATE

REACTIONS (8)
  - Demyelination [Recovering/Resolving]
  - Encephalopathy [Recovering/Resolving]
  - Leukocytosis [Unknown]
  - Laboratory test abnormal [Unknown]
  - Arthropod bite [Unknown]
  - Paranasal sinus hypersecretion [Unknown]
  - Hyperglycaemia [Unknown]
  - Productive cough [Unknown]

NARRATIVE: CASE EVENT DATE: 199906
